FAERS Safety Report 14241382 (Version 1)
Quarter: 2017Q4

REPORT INFORMATION
  Report Type: Spontaneous
  Country: FR (occurrence: FR)
  Receive Date: 20171130
  Receipt Date: 20171130
  Transmission Date: 20180321
  Serious: Yes (Other)
  Sender: FDA-Public Use
  Company Number: FR-MERCK KGAA-2036434

PATIENT
  Age: 46 Year
  Sex: Male

DRUGS (1)
  1. NOVOTHYROX [Suspect]
     Active Substance: LEVOTHYROXINE SODIUM
     Indication: PRODUCT USED FOR UNKNOWN INDICATION

REACTIONS (14)
  - Decreased interest [None]
  - Auditory disorder [None]
  - Fatigue [None]
  - Migraine [None]
  - Depressed mood [None]
  - Tinnitus [None]
  - Mood altered [None]
  - Libido decreased [None]
  - Arrhythmia [None]
  - Palpitations [None]
  - Asthenia [None]
  - Muscle spasms [None]
  - Anger [None]
  - Vertigo [None]

NARRATIVE: CASE EVENT DATE: 2017
